FAERS Safety Report 16759484 (Version 1)
Quarter: 2019Q4

REPORT INFORMATION
  Report Type: Spontaneous
  Country: US (occurrence: US)
  Receive Date: 20190829
  Receipt Date: 20190829
  Transmission Date: 20200122
  Serious: Yes (Life-Threatening, Disabling)
  Sender: FDA-Public Use
  Company Number: None

PATIENT
  Age: 8 Month
  Sex: Male
  Weight: 8 kg

DRUGS (24)
  1. CASPOFUNGIN [Concomitant]
     Active Substance: CASPOFUNGIN
     Dates: start: 20190818, end: 20190820
  2. CEFEPIME [Concomitant]
     Active Substance: CEFEPIME HYDROCHLORIDE
     Dates: start: 20190817, end: 20190818
  3. BUDESONIDE. [Concomitant]
     Active Substance: BUDESONIDE
     Dates: start: 20190814
  4. DORNASE ALFA INHALATION [Concomitant]
     Dates: start: 20190817
  5. ACETAMINOPHEN. [Concomitant]
     Active Substance: ACETAMINOPHEN
     Dates: start: 20190818, end: 20190818
  6. POTASSIUM CHLORIDE. [Concomitant]
     Active Substance: POTASSIUM CHLORIDE
     Dates: start: 20190818, end: 20190818
  7. LINEZOLID. [Suspect]
     Active Substance: LINEZOLID
     Indication: LOWER RESPIRATORY TRACT INFECTION BACTERIAL
     Route: 042
     Dates: start: 20190816, end: 20190817
  8. MIDAZOLAM [Concomitant]
     Active Substance: MIDAZOLAM HYDROCHLORIDE
     Dates: start: 20190806
  9. ACYCLOVIR. [Concomitant]
     Active Substance: ACYCLOVIR
     Dates: start: 20190818, end: 20190819
  10. METHADONE [Suspect]
     Active Substance: METHADONE HYDROCHLORIDE
     Indication: DRUG WITHDRAWAL MAINTENANCE THERAPY
     Dosage: ?          OTHER ROUTE:PER ENTERIC TUBE?
     Dates: start: 20190726, end: 20190818
  11. PHYTONADIONE. [Concomitant]
     Active Substance: PHYTONADIONE
     Dates: start: 20190818, end: 20190820
  12. NOREPINEPHRINE. [Concomitant]
     Active Substance: NOREPINEPHRINE
     Dates: start: 20190818, end: 20190819
  13. MEROPENEM. [Concomitant]
     Active Substance: MEROPENEM
     Dates: start: 20190819
  14. BOSENTAN. [Concomitant]
     Active Substance: BOSENTAN
     Dates: start: 20190716, end: 20190819
  15. HYDROCORTISONE. [Concomitant]
     Active Substance: HYDROCORTISONE
     Dates: start: 20190818, end: 20190822
  16. FOSPHENYTOIN [Concomitant]
     Active Substance: FOSPHENYTOIN
     Dates: start: 20190818, end: 20190818
  17. CIPROFLOXACIN. [Concomitant]
     Active Substance: CIPROFLOXACIN
     Dates: start: 20190818, end: 20190820
  18. DEXMEDETOMIDINE. [Concomitant]
     Active Substance: DEXMEDETOMIDINE
     Dates: start: 20190720
  19. EPINEPHRINE. [Concomitant]
     Active Substance: EPINEPHRINE
     Dates: start: 20190818, end: 20190819
  20. LEVETIRACETAM. [Concomitant]
     Active Substance: LEVETIRACETAM
     Dates: start: 20190818, end: 20190819
  21. VANCOMYCIN [Concomitant]
     Active Substance: VANCOMYCIN
     Dates: start: 20190817
  22. ROCURONIUM [Concomitant]
     Active Substance: ROCURONIUM BROMIDE
     Dates: start: 20190818, end: 20190818
  23. LINEZOLID. [Suspect]
     Active Substance: LINEZOLID
     Indication: STAPHYLOCOCCAL INFECTION
     Route: 042
     Dates: start: 20190816, end: 20190817
  24. LORAZEPAM. [Concomitant]
     Active Substance: LORAZEPAM
     Dates: start: 20190818, end: 20190819

REACTIONS (18)
  - Status epilepticus [None]
  - Rhabdomyolysis [None]
  - Acute kidney injury [None]
  - Toxicity to various agents [None]
  - Hyperthermia [None]
  - Disseminated intravascular coagulation [None]
  - Hypotension [None]
  - Multiple organ dysfunction syndrome [None]
  - Hyperthermia malignant [None]
  - Meningitis [None]
  - Diffusion-weighted brain MRI abnormal [None]
  - Serotonin syndrome [None]
  - Muscle rigidity [None]
  - Myoclonic epilepsy [None]
  - Agitation [None]
  - Septic shock [None]
  - Slow response to stimuli [None]
  - Neuroleptic malignant syndrome [None]

NARRATIVE: CASE EVENT DATE: 20190818
